FAERS Safety Report 17292638 (Version 2)
Quarter: 2020Q1

REPORT INFORMATION
  Report Type: Spontaneous
  Country: US (occurrence: US)
  Receive Date: 20200121
  Receipt Date: 20200213
  Transmission Date: 20200409
  Serious: Yes (Other)
  Sender: FDA-Public Use
  Company Number: US-BAYER-2020-000876

PATIENT
  Age: 24 Year
  Sex: Female

DRUGS (1)
  1. MIRENA [Suspect]
     Active Substance: LEVONORGESTREL
     Indication: CONTRACEPTION
     Dosage: 20 ?G PER DAY, CONTINUOSLY
     Route: 015
     Dates: start: 20190205, end: 20200128

REACTIONS (2)
  - Device dislocation [Recovered/Resolved]
  - Device malfunction [None]

NARRATIVE: CASE EVENT DATE: 20190205
